FAERS Safety Report 9051676 (Version 2)
Quarter: 2013Q1

REPORT INFORMATION
  Report Type: Spontaneous
  Country: US (occurrence: US)
  Receive Date: 20130207
  Receipt Date: 20130218
  Transmission Date: 20140127
  Serious: Yes (Hospitalization, Other)
  Sender: FDA-Public Use
  Company Number: US-BIOGENIDEC-2013BI009991

PATIENT
  Age: 31 Year
  Sex: Female

DRUGS (1)
  1. TYSABRI [Suspect]
     Indication: MULTIPLE SCLEROSIS
     Route: 042
     Dates: start: 20120822

REACTIONS (7)
  - Tooth infection [Recovered/Resolved]
  - Convulsion [Recovered/Resolved]
  - Endodontic procedure [Recovered/Resolved]
  - Pyrexia [Recovered/Resolved]
  - Jaw operation [Recovered/Resolved]
  - Wound infection [Recovered/Resolved]
  - Amnesia [Not Recovered/Not Resolved]
